FAERS Safety Report 5575670-5 (Version None)
Quarter: 2007Q4

REPORT INFORMATION
  Report Type: 
  Country: None (occurrence: None)
  Receive Date: 20071221
  Receipt Date: 20071210
  Transmission Date: 20080405
  Serious: Yes (Hospitalization)
  Sender: FDA-Public Use
  Company Number: MEDI-0006301

PATIENT
  Age: 11 Month
  Sex: Female
  Weight: 9.2 kg

DRUGS (3)
  1. SYNAGIS [Suspect]
     Indication: ANTIVIRAL PROPHYLAXIS
     Dosage: 1.3 ML, INTRAMUSCULAR, 1.35 ML, INTRAMUSCULAR
     Route: 030
     Dates: start: 20071107, end: 20071107
  2. SYNAGIS [Suspect]
     Indication: ANTIVIRAL PROPHYLAXIS
     Dosage: 1.3 ML, INTRAMUSCULAR, 1.35 ML, INTRAMUSCULAR
     Route: 030
     Dates: start: 20071205
  3. SOTALOL HCL [Concomitant]

REACTIONS (2)
  - SUPRAVENTRICULAR TACHYCARDIA [None]
  - UPPER RESPIRATORY TRACT INFECTION [None]
